FAERS Safety Report 6246346-6 (Version None)
Quarter: 2009Q2

REPORT INFORMATION
  Report Type: 
  Country: None (occurrence: None)
  Receive Date: 20090624
  Receipt Date: 20090624
  Transmission Date: 20091009
  Serious: Yes (Other)
  Sender: FDA-Public Use
  Company Number: None

PATIENT
  Age: 49 Year
  Sex: Female
  Weight: 54.4316 kg

DRUGS (4)
  1. DIFLUCAN [Suspect]
     Indication: FUNGAL INFECTION
     Dosage: 2 TABLETS A WEEK APART
     Dates: start: 20090606, end: 20090606
  2. DIFLUCAN [Suspect]
     Indication: VAGINAL INFECTION
     Dosage: 2 TABLETS A WEEK APART
     Dates: start: 20090606, end: 20090606
  3. DIFLUCAN [Suspect]
     Indication: FUNGAL INFECTION
     Dosage: 2 TABLETS A WEEK APART
     Dates: start: 20080613, end: 20090613
  4. DIFLUCAN [Suspect]
     Indication: VAGINAL INFECTION
     Dosage: 2 TABLETS A WEEK APART
     Dates: start: 20080613, end: 20090613

REACTIONS (9)
  - ABDOMINAL PAIN [None]
  - CHILLS [None]
  - DRUG TOXICITY [None]
  - FEELING OF BODY TEMPERATURE CHANGE [None]
  - GAIT DISTURBANCE [None]
  - INSOMNIA [None]
  - MUSCULOSKELETAL STIFFNESS [None]
  - MYALGIA [None]
  - NEUROPATHY PERIPHERAL [None]
